FAERS Safety Report 25213488 (Version 1)
Quarter: 2025Q2

REPORT INFORMATION
  Report Type: Spontaneous
  Country: US (occurrence: None)
  Receive Date: 20250417
  Receipt Date: 20250417
  Transmission Date: 20250716
  Serious: Yes (Death)
  Sender: FDA-CTU
  Company Number: None

PATIENT
  Age: 66 Year
  Sex: Male

DRUGS (1)
  1. PIRFENIDONE [Suspect]
     Active Substance: PIRFENIDONE
     Indication: Idiopathic pulmonary fibrosis
     Dosage: 267MG TID ORAL?
     Route: 048
     Dates: start: 20250228, end: 20250414

REACTIONS (5)
  - Pain [None]
  - Back pain [None]
  - Asthenia [None]
  - Metabolic acidosis [None]
  - Lung infiltration [None]

NARRATIVE: CASE EVENT DATE: 20250414
